FAERS Safety Report 19063220 (Version 1)
Quarter: 2021Q1

REPORT INFORMATION
  Report Type: Spontaneous
  Country: US (occurrence: US)
  Receive Date: 20210326
  Receipt Date: 20210326
  Transmission Date: 20210420
  Serious: No
  Sender: FDA-Public Use
  Company Number: None

PATIENT
  Sex: Female
  Weight: 50.4 kg

DRUGS (11)
  1. CALCIUM 600 MG WITH D [Concomitant]
  2. CLINDAMYCIN. [Concomitant]
     Active Substance: CLINDAMYCIN
  3. PROLIA [Concomitant]
     Active Substance: DENOSUMAB
  4. CENTRUM SILVER [Concomitant]
     Active Substance: MINERALS\VITAMINS
  5. VITAMIN [Concomitant]
     Active Substance: VITAMINS
  6. VITAMIN K2 + VITAMIN D3 [Concomitant]
  7. AMLODIPINE [Concomitant]
     Active Substance: AMLODIPINE BESYLATE
  8. TYLENOL [Concomitant]
     Active Substance: ACETAMINOPHEN
  9. BETIMOL [Suspect]
     Active Substance: TIMOLOL
     Indication: INTRAOCULAR PRESSURE TEST
     Dates: start: 20201201, end: 20210128
  10. LISINOPRIL. [Concomitant]
     Active Substance: LISINOPRIL
  11. HYDROCHLOROTHIAZIDE. [Concomitant]
     Active Substance: HYDROCHLOROTHIAZIDE

REACTIONS (4)
  - Rash [None]
  - Hypoaesthesia [None]
  - Joint swelling [None]
  - Peripheral coldness [None]
